FAERS Safety Report 8492055-2 (Version None)
Quarter: 2012Q3

REPORT INFORMATION
  Report Type: 
  Country: None (occurrence: None)
  Receive Date: 20120706
  Receipt Date: 20120702
  Transmission Date: 20120928
  Serious: Yes (Hospitalization)
  Sender: FDA-Public Use
  Company Number: US-PFIZER INC-2012123837

PATIENT
  Sex: Female

DRUGS (3)
  1. REVATIO [Suspect]
     Indication: PULMONARY HYPERTENSION
     Dosage: 20 MG, 3X/DAY
     Dates: start: 20100714
  2. VENTAVIS [Concomitant]
     Indication: PULMONARY ARTERIAL HYPERTENSION
     Dosage: 20 MCG PER 1 ML AMPOULE 5 MCG DOSE
     Dates: start: 20100701
  3. REVATIO [Suspect]
     Dosage: 20 MG, 3X/DAY
     Route: 048
     Dates: start: 20100401

REACTIONS (2)
  - URINARY TRACT INFECTION [None]
  - ABDOMINAL DISTENSION [None]
